FAERS Safety Report 16215439 (Version 3)
Quarter: 2020Q2

REPORT INFORMATION
  Report Type: Spontaneous
  Country: US (occurrence: US)
  Receive Date: 20190419
  Receipt Date: 20200420
  Transmission Date: 20200713
  Serious: Yes (Hospitalization)
  Sender: FDA-Public Use
  Company Number: US-JNJFOC-20190408392

PATIENT
  Age: 74 Year
  Sex: Male

DRUGS (15)
  1. PARACETAMOL [Suspect]
     Active Substance: ACETAMINOPHEN
     Indication: PRODUCT USED FOR UNKNOWN INDICATION
     Route: 065
  2. XARELTO [Suspect]
     Active Substance: RIVAROXABAN
     Route: 048
     Dates: end: 20180801
  3. ATORVASTATIN [Concomitant]
     Active Substance: ATORVASTATIN
  4. DEXTROSE. [Concomitant]
     Active Substance: DEXTROSE
  5. LISINOPRIL. [Concomitant]
     Active Substance: LISINOPRIL
  6. MELOXICAM. [Suspect]
     Active Substance: MELOXICAM
  7. XARELTO [Suspect]
     Active Substance: RIVAROXABAN
     Route: 048
     Dates: start: 20180514, end: 20180617
  8. MELOXICAM. [Suspect]
     Active Substance: MELOXICAM
     Indication: PRODUCT USED FOR UNKNOWN INDICATION
     Route: 065
  9. XARELTO [Suspect]
     Active Substance: RIVAROXABAN
     Indication: CEREBROVASCULAR ACCIDENT PROPHYLAXIS
     Route: 048
     Dates: start: 20170924, end: 20171227
  10. SODIUM CHLORIDE. [Concomitant]
     Active Substance: SODIUM CHLORIDE
  11. DIAZEPAM. [Concomitant]
     Active Substance: DIAZEPAM
  12. PANTOPRAZOLE [Concomitant]
     Active Substance: PANTOPRAZOLE
  13. TRAMADOL. [Concomitant]
     Active Substance: TRAMADOL
  14. LISINOPRIL. [Concomitant]
     Active Substance: LISINOPRIL
  15. XARELTO [Suspect]
     Active Substance: RIVAROXABAN
     Indication: ATRIAL FIBRILLATION
     Route: 048
     Dates: start: 20170721, end: 20170922

REACTIONS (6)
  - Haematoma [Recovering/Resolving]
  - Acute kidney injury [Unknown]
  - Gastrointestinal haemorrhage [Unknown]
  - Fall [Unknown]
  - Skin haemorrhage [Recovering/Resolving]
  - Subarachnoid haemorrhage [Recovering/Resolving]

NARRATIVE: CASE EVENT DATE: 201709
